FAERS Safety Report 11584354 (Version 3)
Quarter: 2015Q4

REPORT INFORMATION
  Report Type: Spontaneous
  Country: JP (occurrence: JP)
  Receive Date: 20151001
  Receipt Date: 20151118
  Transmission Date: 20160304
  Serious: Yes (Other)
  Sender: FDA-Public Use
  Company Number: JP-009507513-1509JPN008540

PATIENT
  Age: 80 Year
  Sex: Female

DRUGS (6)
  1. BELSOMRA [Suspect]
     Active Substance: SUVOREXANT
     Indication: INSOMNIA
     Dosage: 15 MG, QD
     Route: 048
     Dates: start: 20150910, end: 20150910
  2. AMLODIPINE [Concomitant]
     Active Substance: AMLODIPINE BESYLATE
     Dosage: DAILY DOSAGE UNKNOWN
     Route: 048
  3. THYRADIN-S [Concomitant]
     Active Substance: LEVOTHYROXINE
     Dosage: DAILY DOSAGE UNKNOWN
     Route: 048
  4. CIMETIDINE [Interacting]
     Active Substance: CIMETIDINE
     Dosage: DIVIDED DOSE FREQUENCY UNKNOWN
     Route: 048
  5. BROTIZOLAM [Concomitant]
     Active Substance: BROTIZOLAM
     Dosage: AS NEEDED
     Route: 048
  6. CARVEDILOL. [Concomitant]
     Active Substance: CARVEDILOL
     Dosage: DAILY DOSAGE UNKNOWN
     Route: 048

REACTIONS (5)
  - Drug interaction [Unknown]
  - Dizziness [Unknown]
  - Malaise [Recovered/Resolved]
  - Therapeutic response increased [Unknown]
  - Sleep paralysis [Recovered/Resolved]

NARRATIVE: CASE EVENT DATE: 201509
